FAERS Safety Report 23331538 (Version 1)
Quarter: 2023Q4

REPORT INFORMATION
  Report Type: Spontaneous
  Country: CN (occurrence: CN)
  Receive Date: 20231222
  Receipt Date: 20231222
  Transmission Date: 20240110
  Serious: Yes (Life-Threatening)
  Sender: FDA-Public Use
  Company Number: CN-BAYER-2023A183910

PATIENT
  Age: 53 Year
  Sex: Male

DRUGS (2)
  1. ULTRAVIST [Suspect]
     Active Substance: IOPROMIDE
     Indication: Computerised tomogram thorax
     Dosage: 55 ML, ONCE,AT A FLOW OF 3.5ML/S
     Route: 040
     Dates: start: 20231220, end: 20231220
  2. ULTRAVIST [Suspect]
     Active Substance: IOPROMIDE
     Indication: Pulmonary mass

REACTIONS (3)
  - Pulse abnormal [Recovering/Resolving]
  - Tremor [Recovering/Resolving]
  - Cold sweat [Recovering/Resolving]

NARRATIVE: CASE EVENT DATE: 20231220
